FAERS Safety Report 8180148-9 (Version None)
Quarter: 2012Q1

REPORT INFORMATION
  Report Type: 
  Country: None (occurrence: None)
  Receive Date: 20120229
  Receipt Date: 20120216
  Transmission Date: 20120608
  Serious: Yes (Other)
  Sender: FDA-Public Use
  Company Number: 2012P1007884

PATIENT
  Age: 18 Year
  Sex: Female
  Weight: 45.3597 kg

DRUGS (2)
  1. CLOBAZAM [Concomitant]
  2. CARBAMAZEPINE [Suspect]
     Indication: CONVULSION
     Dosage: 400 MG, TID, PO
     Route: 048
     Dates: start: 20120118, end: 20120130

REACTIONS (4)
  - UNRESPONSIVE TO STIMULI [None]
  - CONVULSION [None]
  - TARDIVE DYSKINESIA [None]
  - EXCESSIVE EYE BLINKING [None]
